FAERS Safety Report 4427272-1 (Version None)
Quarter: 2004Q3

REPORT INFORMATION
  Report Type: 
  Country: None (occurrence: None)
  Receive Date: 20040811
  Receipt Date: 20040802
  Transmission Date: 20050211
  Serious: Yes (Death)
  Sender: FDA-Public Use
  Company Number: 163-20785-04070531

PATIENT
  Age: 61 Year
  Sex: Male

DRUGS (1)
  1. THALOMID [Suspect]
     Indication: MYELOFIBROSIS
     Dosage: 200 MG DAILY ORAL
     Route: 048
     Dates: start: 20040601, end: 20040601

REACTIONS (3)
  - LUNG DISORDER [None]
  - PNEUMONIA [None]
  - SCLERODERMA [None]
